FAERS Safety Report 6194499-0 (Version None)
Quarter: 2009Q2

REPORT INFORMATION
  Report Type: 
  Country: None (occurrence: None)
  Receive Date: 20090519
  Receipt Date: 20090512
  Transmission Date: 20091009
  Serious: Yes (Hospitalization)
  Sender: FDA-Public Use
  Company Number: FR-JNJFOC-20090502563

PATIENT
  Age: 25 Year
  Sex: Female

DRUGS (3)
  1. TAVANIC [Suspect]
     Indication: LUNG DISORDER
     Route: 048
  2. AUGMENTIN '125' [Suspect]
     Indication: LUNG DISORDER
     Route: 048
  3. INNOHEP [Concomitant]
     Route: 058

REACTIONS (3)
  - DEEP VEIN THROMBOSIS [None]
  - INTERNATIONAL NORMALISED RATIO INCREASED [None]
  - PROTHROMBIN TIME SHORTENED [None]
